FAERS Safety Report 8827591 (Version 1)
Quarter: 2012Q4

REPORT INFORMATION
  Report Type: 
  Country: US (occurrence: US)
  Receive Date: 20121005
  Receipt Date: 20121005
  Transmission Date: 20130627
  Serious: Yes (Hospitalization)
  Sender: FDA-Public Use
  Company Number: US-B.I. PHARMACEUTICALS,INC./RIDGEFIELD-2012-BP-23828BP

PATIENT
  Sex: Male

DRUGS (7)
  1. MICARDIS [Suspect]
     Indication: HYPERTENSION
     Route: 048
     Dates: start: 201107, end: 201208
  2. WARFARIN [Concomitant]
     Indication: ANTICOAGULANT THERAPY
  3. CARVEDILOL [Concomitant]
     Indication: HYPERTENSION
  4. TETRACYCLINE [Concomitant]
     Indication: INFECTION
  5. LOSARTAN [Concomitant]
     Indication: HYPERTENSION
  6. DIGOXIN [Concomitant]
     Indication: CARDIAC FAILURE
  7. SPIRONOLACTONE [Concomitant]
     Indication: FLUID RETENTION

REACTIONS (7)
  - Cardiac failure [Not Recovered/Not Resolved]
  - Renal failure [Not Recovered/Not Resolved]
  - Thrombosis [Recovered/Resolved]
  - Tendon rupture [Recovered/Resolved]
  - Oedema peripheral [Not Recovered/Not Resolved]
  - Pain in extremity [Not Recovered/Not Resolved]
  - Infection [Recovered/Resolved]
